FAERS Safety Report 4434752-1 (Version None)
Quarter: 2004Q3

REPORT INFORMATION
  Report Type: 
  Country: None (occurrence: None)
  Receive Date: 20040827
  Receipt Date: 20040714
  Transmission Date: 20050211
  Serious: No
  Sender: FDA-Public Use
  Company Number: US-BRISTOL-MYERS SQUIBB COMPANY-12642443

PATIENT
  Sex: Female
  Weight: 87 kg

DRUGS (1)
  1. DEFINITY [Suspect]
     Dosage: DILUTED BOLUS; 8.6 CC SALINE MIXED WITH DEFINITY
     Dates: start: 20040713, end: 20040713

REACTIONS (1)
  - URTICARIA [None]
